FAERS Safety Report 5927516-0 (Version None)
Quarter: 2008Q4

REPORT INFORMATION
  Report Type: 
  Country: None (occurrence: None)
  Receive Date: 20081023
  Receipt Date: 20081017
  Transmission Date: 20090506
  Serious: Yes (Other)
  Sender: FDA-Public Use
  Company Number: US-SP-2008-02951

PATIENT
  Age: 37 Year
  Sex: Female

DRUGS (10)
  1. ADACEL [Suspect]
     Indication: IMMUNISATION
     Route: 065
     Dates: start: 20080909
  2. TUBERSOL [Suspect]
     Route: 065
     Dates: start: 20080909
  3. THEOPHYLLINE [Concomitant]
  4. DECONOMINE [Concomitant]
  5. FORADIL [Concomitant]
  6. ASMANEX TWISTHALER [Concomitant]
  7. FLONASE [Concomitant]
  8. ZEGARID [Concomitant]
  9. CARDIZEM [Concomitant]
     Dates: end: 20080920
  10. LISINOPRIL [Concomitant]
     Dates: start: 20080920

REACTIONS (2)
  - PRURITUS [None]
  - RASH MACULO-PAPULAR [None]
